FAERS Safety Report 16385937 (Version 1)
Quarter: 2019Q2

REPORT INFORMATION
  Report Type: Spontaneous
  Country: FR (occurrence: FR)
  Receive Date: 20190603
  Receipt Date: 20190603
  Transmission Date: 20190711
  Serious: Yes (Other)
  Sender: FDA-Public Use
  Company Number: FR-CELGENEUS-FRA-20190508568

PATIENT
  Age: 27 Year
  Sex: Female

DRUGS (3)
  1. ROMIDEPSIN. [Suspect]
     Active Substance: ROMIDEPSIN
     Indication: PERIPHERAL T-CELL LYMPHOMA UNSPECIFIED
  2. ROMIDEPSIN. [Suspect]
     Active Substance: ROMIDEPSIN
     Indication: HYPEREOSINOPHILIC SYNDROME
     Route: 041
     Dates: start: 2015
  3. ROMIDEPSIN. [Suspect]
     Active Substance: ROMIDEPSIN
     Indication: OFF LABEL USE

REACTIONS (2)
  - Amenorrhoea [Unknown]
  - Nausea [Unknown]
